FAERS Safety Report 6615199-6 (Version None)
Quarter: 2010Q1

REPORT INFORMATION
  Report Type: 
  Country: None (occurrence: None)
  Receive Date: 20100305
  Receipt Date: 20100302
  Transmission Date: 20100710
  Serious: Yes (Death)
  Sender: FDA-Public Use
  Company Number: PHHY2010CA06459

PATIENT
  Sex: Female

DRUGS (10)
  1. ACLASTA [Suspect]
     Indication: OSTEOPOROSIS
     Dosage: UNK
     Dates: start: 20080624
  2. GEN-GLICLAZIDE [Concomitant]
     Dosage: 160 MG, UNK
  3. PLAVIX [Concomitant]
     Dosage: 75 MG, UNK
  4. WARFARIN SODIUM [Concomitant]
  5. MICARDIS HCT [Concomitant]
     Dosage: 160 MG, UNK
  6. LIPITOR [Concomitant]
     Dosage: 20 MG, UNK
  7. ALTACE [Concomitant]
     Dosage: 2.5 MG, UNK
  8. ISOSORBIDE MONONITRATE [Concomitant]
     Dosage: 120 MG, UNK
  9. CARVEDILOL [Concomitant]
     Dosage: 50 MG, UNK
  10. OXYCET [Concomitant]

REACTIONS (1)
  - DEATH [None]
